FAERS Safety Report 9079309 (Version 1)
Quarter: 2013Q1

REPORT INFORMATION
  Report Type: Report from Study
  Country: US (occurrence: US)
  Receive Date: 20130130
  Receipt Date: 20130130
  Transmission Date: 20140127
  Serious: No
  Sender: FDA-Public Use
  Company Number: US-ABBOTT-12P-163-0960250-00

PATIENT
  Sex: Female
  Weight: 68.1 kg

DRUGS (7)
  1. HUMIRA 40 MG/ 0.8 ML PRE-FILLED SYRINGE [Suspect]
     Indication: CROHN^S DISEASE
     Dates: start: 2007, end: 20120627
  2. PAXIL [Concomitant]
     Indication: DEPRESSION
  3. ABILIFY [Concomitant]
     Indication: DEPRESSION
  4. KLONOPIN [Concomitant]
     Indication: ANXIETY
  5. AMBIEN [Concomitant]
     Indication: INSOMNIA
  6. BLACK COHOSH [Concomitant]
     Indication: HOT FLUSH
  7. VITAMIN B12 [Concomitant]
     Indication: VITAMIN B12 DECREASED

REACTIONS (5)
  - Rectal prolapse [Not Recovered/Not Resolved]
  - Rectal haemorrhage [Not Recovered/Not Resolved]
  - Myalgia [Not Recovered/Not Resolved]
  - Arthralgia [Not Recovered/Not Resolved]
  - Hypoaesthesia [Not Recovered/Not Resolved]
